FAERS Safety Report 11701585 (Version 8)
Quarter: 2020Q1

REPORT INFORMATION
  Report Type: Report from Study
  Country: JP (occurrence: JP)
  Receive Date: 20151105
  Receipt Date: 20200320
  Transmission Date: 20200409
  Serious: Yes (Other)
  Sender: FDA-Public Use
  Company Number: JP-AEGERION PHARMACEUTICAL INC.-AEGR001588

PATIENT

DRUGS (40)
  1. METRELEPTIN SHIONOGI [Suspect]
     Active Substance: METRELEPTIN
     Dosage: 2.7 MG, QD
     Route: 058
     Dates: start: 20130925, end: 20131203
  2. METGLUCO [Suspect]
     Active Substance: METFORMIN HYDROCHLORIDE
     Dosage: 375 MG, QD
     Route: 048
     Dates: start: 20140813, end: 20141006
  3. METGLUCO [Suspect]
     Active Substance: METFORMIN HYDROCHLORIDE
     Dosage: 1000 MG, QD
     Route: 048
     Dates: start: 20151007, end: 20151124
  4. METGLUCO [Suspect]
     Active Substance: METFORMIN HYDROCHLORIDE
     Dosage: 1250 MG, QD
     Route: 048
     Dates: start: 20160120, end: 20160405
  5. METGLUCO [Suspect]
     Active Substance: METFORMIN HYDROCHLORIDE
     Dosage: 1250 MG, QD
     Route: 048
     Dates: start: 20170126, end: 20170325
  6. LOXOPROFEN NA [Concomitant]
     Active Substance: LOXOPROFEN SODIUM
     Indication: BRONCHITIS
     Dosage: 180 MG, QD
     Dates: start: 20131024, end: 20131028
  7. LUTORAL [Concomitant]
     Active Substance: CHLORMADINONE ACETATE
     Indication: MENSTRUATION IRREGULAR
     Dosage: 4 MG, QD
     Route: 048
     Dates: start: 20141105, end: 20170725
  8. CHLOPHEDRIN S                      /00560301/ [Concomitant]
     Indication: BRONCHITIS
     Dosage: 3 DOSAGE FORM/DAY
     Dates: start: 20131024, end: 20131028
  9. ESTRANA [Concomitant]
     Active Substance: ESTRADIOL
     Dosage: UNK
     Dates: start: 20170125, end: 20170620
  10. MYTEAR                             /00883501/ [Concomitant]
     Indication: DRY EYE
     Dosage: UNK
     Dates: start: 20170726
  11. METGLUCO [Suspect]
     Active Substance: METFORMIN HYDROCHLORIDE
     Indication: LIPOATROPHY
     Dosage: 500 MG, QD
     Route: 048
     Dates: start: 20140122, end: 20140304
  12. METGLUCO [Suspect]
     Active Substance: METFORMIN HYDROCHLORIDE
     Dosage: 250 MG, QD
     Route: 048
     Dates: start: 20140305, end: 20140812
  13. ESTRANA [Concomitant]
     Active Substance: ESTRADIOL
     Dosage: UNK
     Dates: start: 20160217, end: 20170124
  14. DUPHASTON [Concomitant]
     Active Substance: DYDROGESTERONE
     Indication: PRODUCT USED FOR UNKNOWN INDICATION
     Dosage: 10 MG, QD
     Dates: start: 20170726
  15. METRELEPTIN SHIONOGI [Suspect]
     Active Substance: METRELEPTIN
     Dosage: 3 MG, QD
     Route: 058
     Dates: start: 20131204, end: 20171017
  16. PROMAC                             /00024401/ [Concomitant]
     Active Substance: NITROFURANTOIN
     Indication: GASTRITIS
     Dosage: 75 MG, QD
     Dates: start: 20130810, end: 20131218
  17. CARBOCISTEINE [Concomitant]
     Active Substance: CARBOCYSTEINE
     Indication: UPPER RESPIRATORY TRACT INFECTION
     Dosage: 1000 MG, QD
     Dates: start: 20131007, end: 20131014
  18. COCARL [Concomitant]
     Active Substance: ACETAMINOPHEN
     Indication: UPPER RESPIRATORY TRACT INFECTION
     Dosage: UNK
     Dates: start: 20131007, end: 20131019
  19. CEFZON                             /00559701/ [Concomitant]
     Dosage: 300 MG, QD
     Dates: start: 20151215, end: 20151217
  20. LEVOFLOXACIN HEMIHYDRATE [Concomitant]
     Active Substance: LEVOFLOXACIN
     Indication: BRONCHITIS
     Dosage: 300 MG, QD
     Dates: start: 20131024, end: 20131028
  21. ESTRANA [Concomitant]
     Active Substance: ESTRADIOL
     Indication: MENSTRUATION IRREGULAR
     Dosage: UNK
     Dates: start: 20150715, end: 20160216
  22. METRELEPTIN SHIONOGI [Suspect]
     Active Substance: METRELEPTIN
     Dosage: 4 MG, QD
     Route: 058
     Dates: start: 20171018
  23. METGLUCO [Suspect]
     Active Substance: METFORMIN HYDROCHLORIDE
     Dosage: 1500 MG, QD
     Route: 048
     Dates: start: 20151125, end: 20160119
  24. CEFZON                             /00559701/ [Concomitant]
     Indication: UPPER RESPIRATORY TRACT INFECTION
     Dosage: 300 MG, QD
     Dates: start: 20131016, end: 20131019
  25. CEREKINON [Concomitant]
     Active Substance: TRIMEBUTINE
     Indication: IRRITABLE BOWEL SYNDROME
     Dosage: 100 MG, QD
     Dates: start: 20131030, end: 20131120
  26. ALLEGRA [Concomitant]
     Active Substance: FEXOFENADINE HYDROCHLORIDE
     Indication: RHINITIS
     Dosage: 60 MG, QD
     Dates: start: 20140305, end: 20140505
  27. CALONAL [Concomitant]
     Active Substance: ACETAMINOPHEN
     Indication: DYSMENORRHOEA
     Dosage: UNK
     Dates: start: 20170419, end: 20170517
  28. METGLUCO [Suspect]
     Active Substance: METFORMIN HYDROCHLORIDE
     Dosage: 500 MG, QD
     Route: 048
     Dates: start: 20141007, end: 20150106
  29. METGLUCO [Suspect]
     Active Substance: METFORMIN HYDROCHLORIDE
     Dosage: 750 MG, QD
     Route: 048
     Dates: start: 20150107, end: 20151006
  30. METGLUCO [Suspect]
     Active Substance: METFORMIN HYDROCHLORIDE
     Dosage: 2250 MG, QD
     Route: 048
     Dates: start: 20170326
  31. TRANCOLON [Concomitant]
     Active Substance: MEPENZOLATE BROMIDE
     Indication: IRRITABLE BOWEL SYNDROME
     Dosage: 7.5 MG, QD
     Dates: start: 20131030, end: 20131120
  32. METRELEPTIN SHIONOGI [Suspect]
     Active Substance: METRELEPTIN
     Indication: LIPOATROPHY
     Dosage: 2.7 MG, QD
     Route: 058
     Dates: start: 20110324, end: 20130924
  33. LOBU [Concomitant]
     Active Substance: LOBUCAVIR
     Indication: BRONCHITIS
     Dosage: 180 MG, QD
     Dates: start: 20131030, end: 20131103
  34. NAUZELIN [Concomitant]
     Active Substance: DOMPERIDONE
     Indication: IRRITABLE BOWEL SYNDROME
     Dosage: UNK
     Dates: start: 20131123, end: 20131130
  35. ESTRANA [Concomitant]
     Active Substance: ESTRADIOL
     Dosage: UNK
     Dates: start: 20170621
  36. METGLUCO [Suspect]
     Active Substance: METFORMIN HYDROCHLORIDE
     Dosage: 1000 MG, QD
     Route: 048
     Dates: start: 20160406, end: 20170125
  37. FLOMOX                             /01418603/ [Concomitant]
     Active Substance: CEFCAPENE PIVOXIL HYDROCHLORIDE
     Indication: BRONCHITIS
     Dosage: 300 MG, QD
     Dates: start: 20131030, end: 20131103
  38. REBAMIPIDE [Concomitant]
     Active Substance: REBAMIPIDE
     Indication: IRRITABLE BOWEL SYNDROME
     Dosage: UNK
     Dates: start: 20131123, end: 20131130
  39. ALLEGRA [Concomitant]
     Active Substance: FEXOFENADINE HYDROCHLORIDE
     Dosage: 120 MG, QD
     Dates: start: 20150318, end: 20150609
  40. SODIUM PICOSULFATE HYDRATE [Concomitant]
     Active Substance: SODIUM PICOSULFATE
     Indication: CONSTIPATION
     Dosage: UNK
     Dates: start: 20140710

REACTIONS (16)
  - Menstruation irregular [Not Recovered/Not Resolved]
  - Constipation [Recovering/Resolving]
  - Rhinitis [Recovered/Resolved]
  - Hepatic function abnormal [Recovering/Resolving]
  - Upper respiratory tract infection [Recovered/Resolved]
  - Rhinitis [Recovering/Resolving]
  - Dry eye [Recovering/Resolving]
  - Iron deficiency anaemia [Not Recovered/Not Resolved]
  - Glucose tolerance decreased [Recovering/Resolving]
  - Antibody test positive [Not Recovered/Not Resolved]
  - Irritable bowel syndrome [Recovered/Resolved]
  - Upper respiratory tract infection [Recovered/Resolved]
  - Glucose tolerance decreased [Recovering/Resolving]
  - Bronchitis [Recovered/Resolved]
  - Hepatic function abnormal [Recovering/Resolving]
  - Dysmenorrhoea [Recovering/Resolving]

NARRATIVE: CASE EVENT DATE: 20131007
